FAERS Safety Report 7764179-6 (Version None)
Quarter: 2011Q3

REPORT INFORMATION
  Report Type: 
  Country: None (occurrence: None)
  Receive Date: 20110921
  Receipt Date: 20110915
  Transmission Date: 20111222
  Serious: Yes (Death, Other)
  Sender: FDA-Public Use
  Company Number: US-AMGEN-USASP2011047823

PATIENT
  Sex: Male

DRUGS (2)
  1. NPLATE [Suspect]
     Indication: IDIOPATHIC THROMBOCYTOPENIC PURPURA
     Dates: start: 20090429, end: 20110429
  2. VINCRISTINE [Concomitant]

REACTIONS (2)
  - LUNG NEOPLASM MALIGNANT [None]
  - THERAPEUTIC RESPONSE DECREASED [None]
